FAERS Safety Report 6312121-7 (Version None)
Quarter: 2009Q3

REPORT INFORMATION
  Report Type: 
  Country: None (occurrence: None)
  Receive Date: 20090817
  Receipt Date: 20090811
  Transmission Date: 20100115
  Serious: Yes (Death, Other)
  Sender: FDA-Public Use
  Company Number: GB-CELGENEUS-167-20785-09080849

PATIENT

DRUGS (9)
  1. THALOMID [Suspect]
     Route: 048
  2. THALOMID [Suspect]
     Route: 048
  3. THALOMID [Suspect]
     Route: 048
  4. ETOPOSIDE [Suspect]
     Route: 051
  5. ETOPOSIDE [Suspect]
     Route: 048
  6. ETOPOSIDE [Suspect]
     Route: 051
  7. ETOPOSIDE [Suspect]
     Route: 048
  8. CARBOPLATIN [Suspect]
     Dosage: 5.0
     Route: 051
  9. CARBOPLATIN [Suspect]
     Dosage: 6.0
     Route: 051

REACTIONS (25)
  - ANAEMIA [None]
  - CEREBROVASCULAR ACCIDENT [None]
  - CONSTIPATION [None]
  - DECREASED APPETITE [None]
  - DEEP VEIN THROMBOSIS [None]
  - DIARRHOEA [None]
  - DIZZINESS [None]
  - DRY SKIN [None]
  - EMBOLISM [None]
  - INFECTION [None]
  - LEUKOPENIA [None]
  - MUCOSAL INFLAMMATION [None]
  - MYOCARDIAL INFARCTION [None]
  - NAUSEA [None]
  - NEUTROPENIA [None]
  - NEUTROPENIC INFECTION [None]
  - PERIPHERAL SENSORY NEUROPATHY [None]
  - PULMONARY EMBOLISM [None]
  - RASH [None]
  - RENAL DISORDER [None]
  - SOMNOLENCE [None]
  - STOMATITIS [None]
  - THROMBOCYTOPENIA [None]
  - TRANSIENT ISCHAEMIC ATTACK [None]
  - VOMITING [None]
